FAERS Safety Report 9542140 (Version 4)
Quarter: 2013Q4

REPORT INFORMATION
  Report Type: Report from Study
  Country: GB (occurrence: GB)
  Receive Date: 20130923
  Receipt Date: 20131118
  Transmission Date: 20140711
  Serious: Yes (Hospitalization)
  Sender: FDA-Public Use
  Company Number: GB-ROCHE-1226878

PATIENT
  Age: 70 Year
  Sex: Female
  Weight: 71.5 kg

DRUGS (25)
  1. RHUPH20/RITUXIMAB [Suspect]
     Indication: B-CELL LYMPHOMA
     Dosage: LAST DOSE PRIOR TO SAE 13/MAY/2013
     Route: 058
     Dates: start: 20130513, end: 20130515
  2. FLUDARABINE [Suspect]
     Indication: B-CELL LYMPHOMA
     Dosage: LAST DOSE PRIOR TO SAE 14/MAY/2013
     Route: 048
     Dates: start: 20130513, end: 20130515
  3. FLUDARABINE [Suspect]
     Route: 048
     Dates: start: 20130516
  4. RITUXIMAB [Suspect]
     Indication: B-CELL LYMPHOMA
     Route: 042
     Dates: start: 20130325
  5. RITUXIMAB [Suspect]
     Route: 042
     Dates: start: 20130408
  6. FILGRASTIM [Concomitant]
     Route: 065
     Dates: start: 20130417, end: 20130423
  7. CHLORPHENIRAMINE [Concomitant]
     Indication: HYPERSENSITIVITY
     Route: 065
     Dates: start: 20130325, end: 20130325
  8. CHLORPHENIRAMINE [Concomitant]
     Route: 065
     Dates: start: 20130408, end: 20130408
  9. CHLORPHENIRAMINE [Concomitant]
     Route: 065
     Dates: start: 20130513, end: 20130513
  10. XALATAN [Concomitant]
     Indication: GLAUCOMA
     Dosage: 1 DROP EACH EYE
     Route: 065
     Dates: start: 201110
  11. PARACETAMOL [Concomitant]
     Indication: PAIN IN EXTREMITY
     Dosage: AS REQUIRED
     Route: 065
     Dates: start: 1997
  12. PARACETAMOL [Concomitant]
     Indication: MUSCULOSKELETAL PAIN
     Route: 065
     Dates: start: 20130408, end: 20130408
  13. PARACETAMOL [Concomitant]
     Route: 065
     Dates: start: 20130513, end: 20130513
  14. RANITIDINE [Concomitant]
     Dosage: DAILY
     Route: 065
     Dates: start: 20130325
  15. DOMPERIDONE [Concomitant]
     Route: 065
     Dates: start: 20130408, end: 20130412
  16. DOMPERIDONE [Concomitant]
     Route: 065
     Dates: start: 20130513, end: 20130517
  17. CO-TRIMOXAZOLE [Concomitant]
     Indication: ANTIFUNGAL PROPHYLAXIS
     Route: 065
     Dates: start: 20130408, end: 20130422
  18. ONDANSETRON [Concomitant]
     Route: 065
     Dates: start: 20130408, end: 20130412
  19. ONDANSETRON [Concomitant]
     Route: 065
     Dates: start: 20130513, end: 20130517
  20. ACYCLOVIR [Concomitant]
     Route: 065
     Dates: start: 20130408, end: 20130505
  21. ACYCLOVIR [Concomitant]
     Route: 065
     Dates: start: 20130513, end: 20130513
  22. DAPSONE [Concomitant]
     Route: 065
     Dates: start: 20130521
  23. HYDROCORTISONE [Concomitant]
     Indication: HYPERSENSITIVITY
     Route: 065
     Dates: start: 20130325, end: 20130325
  24. HYDROCORTISONE [Concomitant]
     Route: 065
     Dates: start: 20130408, end: 20130408
  25. ALLOPURINOL [Concomitant]
     Route: 065
     Dates: start: 20130408, end: 20130505

REACTIONS (1)
  - Injection site reaction [Recovered/Resolved]
